FAERS Safety Report 4636372-2 (Version None)
Quarter: 2005Q2

REPORT INFORMATION
  Report Type: 
  Country: None (occurrence: None)
  Receive Date: 20050415
  Receipt Date: 20050118
  Transmission Date: 20051028
  Serious: Yes (Hospitalization)
  Sender: FDA-Public Use
  Company Number: US-ROCHE-392690

PATIENT
  Age: 7 Year
  Sex: Female
  Weight: 26.8 kg

DRUGS (9)
  1. DACLIZUMAB [Suspect]
     Dosage: FREQUENCY NOT REPORTED.
     Route: 065
     Dates: start: 20040823, end: 20041018
  2. MYCOPHENOLATE MOFETIL [Suspect]
     Dosage: 500MG GIVEN A.M., 250MG GIVEN P.M.
     Route: 048
  3. PROGRAF [Suspect]
     Route: 065
  4. PREDNISONE [Suspect]
     Route: 048
  5. VALGANCICLOVIR [Concomitant]
  6. SEPTRA [Concomitant]
     Route: 048
  7. ASPIRIN [Concomitant]
  8. PRILOSEC [Concomitant]
     Route: 048
  9. MAGNESIUM PLUS PROTEIN [Concomitant]
     Route: 048

REACTIONS (9)
  - ABDOMINAL PAIN [None]
  - BLOOD UREA INCREASED [None]
  - CEREBRAL VENTRICLE DILATATION [None]
  - DIARRHOEA [None]
  - ENCEPHALITIS [None]
  - ENCEPHALITIS VIRAL [None]
  - HAEMOGLOBIN DECREASED [None]
  - HYDROCEPHALUS [None]
  - OLIGODIPSIA [None]
